FAERS Safety Report 5686236-0 (Version None)
Quarter: 2008Q1

REPORT INFORMATION
  Report Type: 
  Country: None (occurrence: None)
  Receive Date: 20080328
  Receipt Date: 20070813
  Transmission Date: 20080703
  Serious: Yes (Other)
  Sender: FDA-Public Use
  Company Number: US-BAYER-US-2007-028474

PATIENT
  Age: 33 Year
  Sex: Female

DRUGS (2)
  1. MIRENA [Suspect]
     Indication: CONTRACEPTION
     Route: 015
     Dates: start: 20020101, end: 20040101
  2. VITAMIN TAB [Concomitant]
     Indication: PRENATAL CARE
     Dates: start: 20070101

REACTIONS (2)
  - IUD MIGRATION [None]
  - PROCEDURAL PAIN [None]
